FAERS Safety Report 9602335 (Version 1)
Quarter: 2013Q4

REPORT INFORMATION
  Report Type: Spontaneous
  Country: US (occurrence: US)
  Receive Date: 20131007
  Receipt Date: 20131007
  Transmission Date: 20140711
  Serious: No
  Sender: FDA-Public Use
  Company Number: US-GLAXOSMITHKLINE-A1033171A

PATIENT
  Age: 53 Year
  Sex: Female

DRUGS (1)
  1. BENLYSTA [Suspect]
     Indication: PRODUCT USED FOR UNKNOWN INDICATION
     Dosage: 120MG CYCLIC
     Route: 042
     Dates: start: 20130608

REACTIONS (5)
  - Headache [Recovered/Resolved]
  - Malaise [Unknown]
  - Fatigue [Unknown]
  - Rash [Recovered/Resolved]
  - Sinus congestion [Recovered/Resolved]
